FAERS Safety Report 17805582 (Version 1)
Quarter: 2020Q2

REPORT INFORMATION
  Report Type: Spontaneous
  Country: NL (occurrence: DE)
  Receive Date: 20200519
  Receipt Date: 20200519
  Transmission Date: 20200714
  Serious: Yes (Life-Threatening, Other)
  Sender: FDA-Public Use
  Company Number: DE-FRESENIUS KABI-FK202004732

PATIENT
  Age: 78 Year
  Sex: Female
  Weight: 41 kg

DRUGS (1)
  1. LEVOFLOXACIN (MANUFACTURER UNKNOWN) [Suspect]
     Active Substance: LEVOFLOXACIN
     Indication: PNEUMONIA
     Route: 042
     Dates: start: 20200420, end: 20200424

REACTIONS (2)
  - Acute kidney injury [Not Recovered/Not Resolved]
  - Acute hepatic failure [Not Recovered/Not Resolved]

NARRATIVE: CASE EVENT DATE: 20200424
